FAERS Safety Report 10032929 (Version 2)
Quarter: 2014Q2

REPORT INFORMATION
  Report Type: Spontaneous
  Country: US (occurrence: US)
  Receive Date: 20140324
  Receipt Date: 20140404
  Transmission Date: 20141212
  Serious: Yes (Congenital Anomaly, Other)
  Sender: FDA-Public Use
  Company Number: US-PFIZER INC-2014076413

PATIENT
  Sex: Male

DRUGS (6)
  1. ZOLOFT [Suspect]
     Dosage: UNK
     Route: 064
     Dates: start: 1995, end: 1997
  2. PRENATAL VITAMINS [Concomitant]
     Dosage: UNK
     Route: 064
  3. ALLEGRA [Concomitant]
     Dosage: UNK
     Route: 064
  4. AFRIN [Concomitant]
     Dosage: UNK
     Route: 064
  5. FLU - VACCINE [Concomitant]
     Dosage: UNK
     Route: 064
  6. TYLENOL [Concomitant]
     Dosage: UNK
     Route: 064

REACTIONS (8)
  - Maternal exposure during pregnancy [Unknown]
  - Ventricular septal defect [Unknown]
  - Left ventricle outflow tract obstruction [Unknown]
  - Cardiac failure congestive [Unknown]
  - Atrial septal defect [Unknown]
  - Aortic valve incompetence [Unknown]
  - Plagiocephaly [Unknown]
  - Left ventricular hypertrophy [Unknown]
